FAERS Safety Report 5507337-3 (Version None)
Quarter: 2007Q4

REPORT INFORMATION
  Report Type: 
  Country: None (occurrence: None)
  Receive Date: 20071106
  Receipt Date: 20071031
  Transmission Date: 20080405
  Serious: Yes (Other)
  Sender: FDA-Public Use
  Company Number: US-JNJFOC-20071100139

PATIENT
  Age: 30 Year
  Sex: Male
  Weight: 53.52 kg

DRUGS (6)
  1. IMODIUM ADVANCED [Suspect]
  2. IMODIUM ADVANCED [Suspect]
     Indication: DIARRHOEA
     Dosage: 2-4 CAPLETS PER DAY AS NEEDED
  3. PRILOSEC [Concomitant]
     Indication: GASTROOESOPHAGEAL REFLUX DISEASE
  4. TOPROL-XL [Concomitant]
     Indication: PALPITATIONS
  5. LORAZEPAM [Concomitant]
     Indication: ANXIETY
  6. BENADRYL [Concomitant]
     Indication: MULTIPLE ALLERGIES

REACTIONS (3)
  - CONSTIPATION [None]
  - DRUG DEPENDENCE [None]
  - NAUSEA [None]
